FAERS Safety Report 17743272 (Version 2)
Quarter: 2020Q2

REPORT INFORMATION
  Report Type: Spontaneous
  Country: US (occurrence: US)
  Receive Date: 20200505
  Receipt Date: 20200526
  Transmission Date: 20200714
  Serious: No
  Sender: FDA-Public Use
  Company Number: US-ASTRAZENECA-2020SE51997

PATIENT
  Age: 28915 Day
  Sex: Female
  Weight: 59 kg

DRUGS (1)
  1. PULMICORT FLEXHALER [Suspect]
     Active Substance: BUDESONIDE
     Indication: ASTHMA
     Route: 055
     Dates: start: 2017

REACTIONS (4)
  - Device failure [Unknown]
  - Dysphonia [Not Recovered/Not Resolved]
  - Intentional device misuse [Unknown]
  - Product physical issue [Unknown]

NARRATIVE: CASE EVENT DATE: 202004
